FAERS Safety Report 20924345 (Version 1)
Quarter: 2022Q2

REPORT INFORMATION
  Report Type: Spontaneous
  Country: US (occurrence: US)
  Receive Date: 20220607
  Receipt Date: 20220607
  Transmission Date: 20220721
  Serious: No
  Sender: FDA-Public Use
  Company Number: US-PFIZER INC-202200799037

PATIENT
  Age: 75 Year
  Sex: Female

DRUGS (3)
  1. XELJANZ [Interacting]
     Active Substance: TOFACITINIB CITRATE
     Dosage: 5 MG
  2. LIPITOR [Interacting]
     Active Substance: ATORVASTATIN CALCIUM
     Dosage: UNK
  3. ESOMEPRAZOLE [Interacting]
     Active Substance: ESOMEPRAZOLE
     Dosage: UNK

REACTIONS (1)
  - Drug interaction [Unknown]
